FAERS Safety Report 23135326 (Version 1)
Quarter: 2023Q4

REPORT INFORMATION
  Report Type: Spontaneous
  Country: US (occurrence: US)
  Receive Date: 20231101
  Receipt Date: 20231101
  Transmission Date: 20240109
  Serious: Yes (Hospitalization)
  Sender: FDA-Public Use
  Company Number: US-TAKEDA-2023TUS105761

PATIENT
  Sex: Female
  Weight: 73 kg

DRUGS (1)
  1. TRINTELLIX [Suspect]
     Active Substance: VORTIOXETINE HYDROBROMIDE
     Indication: Bipolar disorder
     Dosage: 10 MILLIGRAM, QD
     Route: 048
     Dates: start: 202209

REACTIONS (4)
  - Hospitalisation [Unknown]
  - Product use issue [Unknown]
  - Product prescribing issue [Unknown]
  - No adverse event [Unknown]
